FAERS Safety Report 20813154 (Version 1)
Quarter: 2022Q2

REPORT INFORMATION
  Report Type: Spontaneous
  Country: US (occurrence: US)
  Receive Date: 20220511
  Receipt Date: 20220511
  Transmission Date: 20220721
  Serious: No
  Sender: FDA-Public Use
  Company Number: US-ORGANON-O2204USA001722

PATIENT
  Age: 27 Year
  Sex: Female
  Weight: 44.444 kg

DRUGS (3)
  1. NEXPLANON [Suspect]
     Active Substance: ETONOGESTREL
     Indication: Contraception
     Dosage: 1 IMPLANT OF 68 MG ONCE IN LEFT ARM
     Route: 059
     Dates: start: 20220202, end: 20220329
  2. ALBUTEROL [Concomitant]
     Active Substance: ALBUTEROL
  3. VITAMINS [Concomitant]
     Active Substance: VITAMINS

REACTIONS (1)
  - Staphylococcal infection [Recovered/Resolved]

NARRATIVE: CASE EVENT DATE: 20220311
